FAERS Safety Report 4643866-2 (Version None)
Quarter: 2005Q2

REPORT INFORMATION
  Report Type: 
  Country: None (occurrence: None)
  Receive Date: 20050425
  Receipt Date: 20050415
  Transmission Date: 20051028
  Serious: Yes (Life-Threatening, Hospitalization, Disabling)
  Sender: FDA-Public Use
  Company Number: US-MERCK-0504USA02632

PATIENT
  Age: 72 Year
  Sex: Male

DRUGS (4)
  1. HYDROCHLOROTHIAZIDE [Concomitant]
     Route: 048
  2. VIOXX [Suspect]
     Indication: PAIN MANAGEMENT
     Route: 048
     Dates: start: 20010101
  3. VIOXX [Suspect]
     Route: 048
     Dates: end: 20040101
  4. [THERAPY UNSPECIFIED] [Concomitant]
     Route: 065

REACTIONS (2)
  - GROIN PAIN [None]
  - HYPERTENSION [None]
